FAERS Safety Report 9878625 (Version 1)
Quarter: 2014Q1

REPORT INFORMATION
  Report Type: Spontaneous
  Country: US (occurrence: US)
  Receive Date: 20140206
  Receipt Date: 20140206
  Transmission Date: 20141002
  Serious: Yes (Hospitalization)
  Sender: FDA-Public Use
  Company Number: US-ROXANE LABORATORIES, INC.-2014-RO-00148RO

PATIENT
  Age: 51 Year
  Sex: Male

DRUGS (10)
  1. MYCOPHENOLATE MOFETIL [Suspect]
     Indication: HEART TRANSPLANT
     Dosage: 2000 MG
  2. PREDNISONE [Suspect]
     Indication: HEART TRANSPLANT
     Dosage: 40 MG
  3. TACROLIMUS [Suspect]
     Indication: HEART TRANSPLANT
     Dosage: 4 MG
  4. ACYCLOVIR [Suspect]
     Indication: HEART TRANSPLANT
     Dosage: 900 MG
  5. ITRACONAZOLE [Suspect]
     Indication: HEART TRANSPLANT
     Dosage: 600 MG
  6. SULFAMETHOXAZOLE AND TRIMETHOPRIM [Suspect]
     Indication: HEART TRANSPLANT
  7. HEPARIN [Concomitant]
     Dosage: 10000 U
     Route: 058
  8. OMEPRAZOLE [Concomitant]
     Dosage: 40 MG
  9. PRAVASTATIN [Concomitant]
     Dosage: 40 MG
  10. FUROSEMIDE [Concomitant]
     Dosage: 80 MG

REACTIONS (3)
  - Pulmonary haemorrhage [Unknown]
  - Capillaritis [Unknown]
  - Acute respiratory failure [Unknown]
